FAERS Safety Report 8387419-1 (Version None)
Quarter: 2012Q2

REPORT INFORMATION
  Report Type: 
  Country: None (occurrence: None)
  Receive Date: 20120525
  Receipt Date: 20120524
  Transmission Date: 20120825
  Serious: Yes (Hospitalization, Other)
  Sender: FDA-Public Use
  Company Number: US-PFIZER INC-2012126347

PATIENT
  Sex: Female
  Weight: 54.422 kg

DRUGS (10)
  1. LIPITOR [Suspect]
     Indication: BLOOD CHOLESTEROL INCREASED
     Dosage: UNK
     Dates: end: 20120401
  2. NICOTINE [Concomitant]
     Indication: SMOKING CESSATION THERAPY
     Dosage: UNK
  3. LEVOXYL [Concomitant]
     Indication: THYROID DISORDER
     Dosage: 88 UG, UNK
  4. TRAMADOL [Concomitant]
     Indication: PAIN
     Dosage: 50 MG, UNK
     Dates: start: 20120101
  5. VITAMIN D [Concomitant]
     Dosage: UNK
  6. RISPERIDONE [Suspect]
     Dosage: 0.5 MG, UNK
     Dates: start: 20120101
  7. SERTRALINE [Concomitant]
     Dosage: 50 MG, DAILY
     Dates: start: 20120101
  8. POTASSIUM [Concomitant]
     Dosage: UNK
  9. ALPRAZOLAM [Concomitant]
     Indication: SLEEP DISORDER
     Dosage: UNK, DAILY
  10. VITAMIN B-12 [Concomitant]
     Dosage: UNK

REACTIONS (9)
  - BLISTER [None]
  - ABDOMINAL DISCOMFORT [None]
  - NAUSEA [None]
  - DYSPEPSIA [None]
  - VOMITING [None]
  - INTRACRANIAL ANEURYSM [None]
  - SKIN DISCOLOURATION [None]
  - WEIGHT DECREASED [None]
  - CONTUSION [None]
